FAERS Safety Report 6613657-1 (Version None)
Quarter: 2010Q1

REPORT INFORMATION
  Report Type: 
  Country: None (occurrence: None)
  Receive Date: 20100304
  Receipt Date: 20100222
  Transmission Date: 20100710
  Serious: Yes (Hospitalization)
  Sender: FDA-Public Use
  Company Number: DE-ABBOTT-09P-062-0593172-00

PATIENT
  Sex: Female

DRUGS (12)
  1. HUMIRA [Suspect]
     Indication: RHEUMATOID ARTHRITIS
     Route: 058
     Dates: start: 20050801
  2. ASPIRIN [Concomitant]
     Indication: THROMBOSIS PROPHYLAXIS
     Route: 048
  3. BELOC-ZOK [Concomitant]
     Indication: HYPERTENSION
     Route: 048
  4. SIMVASTATIN [Concomitant]
     Indication: DRUG USE FOR UNKNOWN INDICATION
     Dosage: 40 MG OD
     Route: 048
     Dates: start: 20090701
  5. PANTOZOL [Concomitant]
     Indication: PROPHYLAXIS AGAINST GASTROINTESTINAL ULCER
     Route: 048
  6. FOLIC ACID [Concomitant]
     Indication: DRUG USE FOR UNKNOWN INDICATION
  7. TORSEMIDE [Concomitant]
     Indication: RENAL FAILURE
     Dates: start: 20080101
  8. TORSEMIDE [Concomitant]
     Indication: POLYURIA
  9. NEORECORMON [Concomitant]
     Indication: DRUG USE FOR UNKNOWN INDICATION
  10. INSULIN [Concomitant]
     Indication: DIABETES MELLITUS
     Route: 058
  11. VITAMIN B-12 [Concomitant]
     Indication: ANAEMIA
  12. IRON [Concomitant]
     Indication: ANAEMIA

REACTIONS (3)
  - ANAEMIA [None]
  - RENAL FAILURE [None]
  - URINARY RETENTION [None]
